FAERS Safety Report 5125641-8 (Version None)
Quarter: 2006Q4

REPORT INFORMATION
  Report Type: 
  Country: None (occurrence: None)
  Receive Date: 20061006
  Receipt Date: 20060922
  Transmission Date: 20070319
  Serious: Yes (Hospitalization)
  Sender: FDA-Public Use
  Company Number: REM_00252_2006

PATIENT
  Sex: Female
  Weight: 35.5 kg

DRUGS (5)
  1. REMODULIN [Suspect]
     Indication: PULMONARY HYPERTENSION
     Dosage: 150 NG/KG/MIN CONTINUOUS IV
     Route: 042
     Dates: start: 20040907, end: 20050721
  2. SILDENAFIL [Concomitant]
  3. DIGOXIN [Concomitant]
  4. LASIX [Concomitant]
  5. OXYGEN [Concomitant]

REACTIONS (5)
  - LUNG NEOPLASM [None]
  - MYCOBACTERIUM FORTUITUM INFECTION [None]
  - PANCYTOPENIA [None]
  - PROPIONIBACTERIUM INFECTION [None]
  - RASH [None]
